FAERS Safety Report 9319930 (Version 2)
Quarter: 2013Q4

REPORT INFORMATION
  Report Type: Spontaneous
  Country: PT (occurrence: PT)
  Receive Date: 20130530
  Receipt Date: 20131125
  Transmission Date: 20140711
  Serious: Yes (Other)
  Sender: FDA-Public Use
  Company Number: PT-MILLENNIUM PHARMACEUTICALS, INC.-2013-04141

PATIENT
  Sex: 0

DRUGS (3)
  1. VELCADE [Suspect]
     Indication: PLASMA CELL MYELOMA
     Dosage: UNK
     Route: 058
     Dates: start: 201202
  2. MELPHALAN [Concomitant]
     Indication: PLASMA CELL MYELOMA
  3. PREDNISONE [Concomitant]
     Indication: PLASMA CELL MYELOMA

REACTIONS (1)
  - Inflammation [Unknown]
